FAERS Safety Report 8503316-2 (Version None)
Quarter: 2012Q2

REPORT INFORMATION
  Report Type: 
  Country: None (occurrence: None)
  Receive Date: 20120405
  Receipt Date: 20100510
  Transmission Date: 20120825
  Serious: Yes (Other)
  Sender: FDA-Public Use
  Company Number: PHEH2009US16387

PATIENT
  Age: 64 Year
  Sex: Male

DRUGS (1)
  1. RECLAST [Suspect]
     Indication: OSTEOPOROSIS
     Dosage: 5 MG, INTRAVENOUS
     Route: 042
     Dates: start: 20081107

REACTIONS (5)
  - ACUTE PHASE REACTION [None]
  - INFLUENZA LIKE ILLNESS [None]
  - MYALGIA [None]
  - ARTHRALGIA [None]
  - PAIN [None]
